FAERS Safety Report 7669223-2 (Version None)
Quarter: 2011Q3

REPORT INFORMATION
  Report Type: 
  Country: None (occurrence: None)
  Receive Date: 20110808
  Receipt Date: 20110725
  Transmission Date: 20111222
  Serious: Yes (Hospitalization)
  Sender: FDA-Public Use
  Company Number: PHHY2011TR67523

PATIENT
  Age: 50 Year
  Sex: Male

DRUGS (6)
  1. CLOPIDOGREL [Concomitant]
     Dosage: UNK UKN, UNK
  2. ACE INHIBITOR NOS [Concomitant]
     Dosage: UNK UKN, UNK
  3. METOPROLOL TARTRATE [Suspect]
     Dosage: UNK UKN, UNK
  4. ASPIRIN [Concomitant]
     Dosage: UNK UKN, UNK
  5. DOPAMINE HCL [Concomitant]
     Dosage: UNK UKN, UNK
  6. HEPARIN [Concomitant]
     Dosage: UNK UKN, UNK

REACTIONS (8)
  - CARDIOGENIC SHOCK [None]
  - LEFT VENTRICULAR DYSFUNCTION [None]
  - VIRAL MYOCARDITIS [None]
  - H1N1 INFLUENZA [None]
  - HAEMODYNAMIC INSTABILITY [None]
  - VENTRICULAR HYPOKINESIA [None]
  - SEPTIC SHOCK [None]
  - BLOOD CREATINE PHOSPHOKINASE INCREASED [None]
